FAERS Safety Report 7751842-6 (Version None)
Quarter: 2011Q3

REPORT INFORMATION
  Report Type: 
  Country: None (occurrence: None)
  Receive Date: 20110914
  Receipt Date: 20110914
  Transmission Date: 20111222
  Serious: No
  Sender: FDA-Public Use
  Company Number: None

PATIENT
  Age: 58 Year
  Sex: Male
  Weight: 68.5 kg

DRUGS (1)
  1. LISINOPRIL [Suspect]
     Indication: HYPERTENSION
     Dosage: 40 MGM BID PO
     Route: 048
     Dates: start: 19981130, end: 20110712

REACTIONS (3)
  - PRURITUS [None]
  - URTICARIA [None]
  - ANGIOEDEMA [None]
